FAERS Safety Report 16831901 (Version 1)
Quarter: 2019Q3

REPORT INFORMATION
  Report Type: Spontaneous
  Country: US (occurrence: US)
  Receive Date: 20190920
  Receipt Date: 20190920
  Transmission Date: 20191005
  Serious: Yes (Other)
  Sender: FDA-Public Use
  Company Number: US-LUPIN PHARMACEUTICALS INC.-2019-06127

PATIENT
  Age: 74 Year
  Sex: Male

DRUGS (1)
  1. VANCOMYCIN [Suspect]
     Active Substance: VANCOMYCIN
     Indication: STAPHYLOCOCCAL SEPSIS
     Dosage: UNK
     Route: 065

REACTIONS (4)
  - Staphylococcal infection [Recovered/Resolved]
  - Drug resistance [Unknown]
  - Fistula [Recovered/Resolved]
  - Abscess [Recovered/Resolved]
